FAERS Safety Report 18409270 (Version 1)
Quarter: 2020Q4

REPORT INFORMATION
  Report Type: Spontaneous
  Country: PL (occurrence: PL)
  Receive Date: 20201021
  Receipt Date: 20201021
  Transmission Date: 20210114
  Serious: Yes (Hospitalization, Other)
  Sender: FDA-Public Use
  Company Number: PL-AMGEN-POLSP2020167058

PATIENT
  Age: 66 Year
  Sex: Male
  Weight: 92 kg

DRUGS (11)
  1. KYPROLIS [Suspect]
     Active Substance: CARFILZOMIB
     Indication: PLASMA CELL MYELOMA
     Dosage: 42 MILLIGRAM
     Route: 042
     Dates: start: 20191009, end: 20191010
  2. DEXAMETHASONE KRKA [Concomitant]
     Active Substance: DEXAMETHASONE
     Dosage: UNK
  3. KYPROLIS [Suspect]
     Active Substance: CARFILZOMIB
     Dosage: 57 MILLIGRAM
     Route: 042
     Dates: start: 20191202, end: 20191203
  4. KYPROLIS [Suspect]
     Active Substance: CARFILZOMIB
     Dosage: 57 MILLIGRAM
     Route: 042
     Dates: start: 20191227, end: 20191228
  5. ACARD [Concomitant]
     Active Substance: ASPIRIN
     Dosage: UNK
  6. REVLIMID [Concomitant]
     Active Substance: LENALIDOMIDE
     Dosage: UNK
  7. KYPROLIS [Suspect]
     Active Substance: CARFILZOMIB
     Dosage: 57 MILLIGRAM
     Route: 042
     Dates: start: 20191016, end: 20191017
  8. HEVIRAN [ACICLOVIR SODIUM] [Concomitant]
     Dosage: UNK
  9. AMLOZEK [Concomitant]
     Active Substance: AMLODIPINE BESYLATE
     Dosage: UNK
  10. PROSCAR [Concomitant]
     Active Substance: FINASTERIDE
     Dosage: UNK
  11. OMNIC OCAS [Concomitant]
     Active Substance: TAMSULOSIN HYDROCHLORIDE
     Dosage: UNK

REACTIONS (5)
  - Salmonella sepsis [Recovering/Resolving]
  - Hepatitis B reactivation [Recovering/Resolving]
  - Neutropenia [Recovering/Resolving]
  - Pneumonia [Recovering/Resolving]
  - Hepatitis B [Recovering/Resolving]

NARRATIVE: CASE EVENT DATE: 201910
